FAERS Safety Report 7131179-9 (Version None)
Quarter: 2010Q4

REPORT INFORMATION
  Report Type: 
  Country: None (occurrence: None)
  Receive Date: 20101201
  Receipt Date: 20101119
  Transmission Date: 20110411
  Serious: Yes (Other)
  Sender: FDA-Public Use
  Company Number: IT-PFIZER INC-2010154381

PATIENT
  Age: 65 Year
  Sex: Female

DRUGS (3)
  1. LYRICA [Suspect]
     Indication: ARTHRALGIA
     Dosage: 150 MG, 1X/DAY
     Route: 048
     Dates: start: 20100616, end: 20100915
  2. EUTIROX [Concomitant]
  3. MODURETIC 5-50 [Concomitant]

REACTIONS (3)
  - FATIGUE [None]
  - POLYCYTHAEMIA [None]
  - VERTIGO [None]
